FAERS Safety Report 20104469 (Version 1)
Quarter: 2021Q4

REPORT INFORMATION
  Report Type: Spontaneous
  Country: US (occurrence: None)
  Receive Date: 20211123
  Receipt Date: 20211123
  Transmission Date: 20220304
  Serious: No
  Sender: FDA-Public Use
  Company Number: None

PATIENT

DRUGS (2)
  1. ZOLPIDEM [Suspect]
     Active Substance: ZOLPIDEM TARTRATE
     Route: 048
  2. DAYVIGO [Suspect]
     Active Substance: LEMBOREXANT

REACTIONS (6)
  - Product dispensing error [None]
  - Wrong product administered [None]
  - Feeling abnormal [None]
  - Product preparation error [None]
  - Product communication issue [None]
  - Transcription medication error [None]
